FAERS Safety Report 14425348 (Version 1)
Quarter: 2018Q1

REPORT INFORMATION
  Report Type: Spontaneous
  Country: IN (occurrence: IN)
  Receive Date: 20180123
  Receipt Date: 20180123
  Transmission Date: 20180509
  Serious: Yes (Hospitalization, Other)
  Sender: FDA-Public Use
  Company Number: IN-IGSA-SR10005749

PATIENT
  Age: 26 Year
  Sex: Male

DRUGS (2)
  1. PREDNISOLONE. [Concomitant]
     Active Substance: PREDNISOLONE
     Dosage: 75 G, QD
  2. HUMAN NORMAL IMMUNOGLOBULIN (IV) [Suspect]
     Active Substance: HUMAN IMMUNOGLOBULIN G
     Indication: IMMUNE THROMBOCYTOPENIC PURPURA
     Dosage: 75 G, SINGLE

REACTIONS (4)
  - Partial seizures [Recovered/Resolved]
  - Cerebral haematoma [Unknown]
  - Headache [Recovered/Resolved]
  - Cerebral venous thrombosis [Unknown]
